FAERS Safety Report 17974326 (Version 1)
Quarter: 2020Q3

REPORT INFORMATION
  Report Type: Spontaneous
  Country: US (occurrence: US)
  Receive Date: 20200702
  Receipt Date: 20200702
  Transmission Date: 20201103
  Serious: Yes (Death)
  Sender: FDA-Public Use
  Company Number: NVSC2020US185512

PATIENT
  Age: 9 Month
  Sex: Male

DRUGS (6)
  1. THIOTEPA. [Suspect]
     Active Substance: THIOTEPA
     Indication: ACUTE MYELOID LEUKAEMIA REFRACTORY
     Dosage: UNK
     Route: 065
  2. VINORELBINE [Suspect]
     Active Substance: VINORELBINE TARTRATE
     Indication: ACUTE MYELOID LEUKAEMIA REFRACTORY
     Dosage: UNK
     Route: 065
  3. TOPOTECAN [Suspect]
     Active Substance: TOPOTECAN HYDROCHLORIDE
     Indication: ACUTE MYELOID LEUKAEMIA REFRACTORY
     Dosage: UNK
     Route: 065
  4. CLOFARABINE. [Suspect]
     Active Substance: CLOFARABINE
     Indication: ACUTE MYELOID LEUKAEMIA REFRACTORY
     Dosage: UNK
     Route: 065
  5. MITOXANTRONE [Concomitant]
     Active Substance: MITOXANTRONE HYDROCHLORIDE
     Indication: CHLOROMA
     Dosage: UNK
     Route: 065
  6. CYTARABINE. [Concomitant]
     Active Substance: CYTARABINE
     Indication: CHLOROMA
     Dosage: UNK
     Route: 065

REACTIONS (4)
  - Malignant neoplasm progression [Fatal]
  - Product use in unapproved indication [Unknown]
  - Acute myeloid leukaemia refractory [Fatal]
  - Treatment failure [Unknown]
